FAERS Safety Report 16651310 (Version 1)
Quarter: 2019Q3

REPORT INFORMATION
  Report Type: Spontaneous
  Country: US (occurrence: US)
  Receive Date: 20190617
  Receipt Date: 20190617
  Transmission Date: 20191004
  Serious: No
  Sender: FDA-Public Use
  Company Number: None

PATIENT
  Age: 57 Year
  Sex: Female

DRUGS (2)
  1. DALFAMPRIDINE ER TAB [Suspect]
     Active Substance: DALFAMPRIDINE
     Route: 048
  2. LISINOPRIL/HCTZ [Concomitant]
     Active Substance: HYDROCHLOROTHIAZIDE\LISINOPRIL

REACTIONS (3)
  - Product substitution issue [None]
  - Gait disturbance [None]
  - Condition aggravated [None]

NARRATIVE: CASE EVENT DATE: 20190617
